FAERS Safety Report 9513975 (Version 2)
Quarter: 2014Q2

REPORT INFORMATION
  Report Type: Spontaneous
  Country: US (occurrence: US)
  Receive Date: 20130910
  Receipt Date: 20140623
  Transmission Date: 20141212
  Serious: Yes (Life-Threatening, Congenital Anomaly, Other)
  Sender: FDA-Public Use
  Company Number: US-ELI_LILLY_AND_COMPANY-US201309001405

PATIENT
  Sex: 0

DRUGS (1)
  1. PROZAC [Suspect]
     Dosage: 1 DF, UNKNOWN
     Route: 064

REACTIONS (19)
  - Atrioventricular septal defect [Unknown]
  - Hypoplastic left heart syndrome [Unknown]
  - Congenital aortic atresia [Unknown]
  - Ventricular hypoplasia [Unknown]
  - Congenital heart valve disorder [Unknown]
  - Congenital tricuspid valve incompetence [Unknown]
  - Sinus arrhythmia [Unknown]
  - Osteochondrosis [Unknown]
  - Gastrooesophageal reflux disease [Unknown]
  - Congenital tricuspid valve atresia [Unknown]
  - Tricuspid valve stenosis [Unknown]
  - Coarctation of the aorta [Unknown]
  - Sinus arrhythmia [Unknown]
  - Generalised anxiety disorder [Unknown]
  - Tricuspid valve incompetence [Unknown]
  - Mitral valve atresia [Unknown]
  - Anencephaly [Unknown]
  - Aortic valve atresia [Unknown]
  - Foetal exposure during pregnancy [Unknown]
